FAERS Safety Report 13817258 (Version 1)
Quarter: 2017Q3

REPORT INFORMATION
  Report Type: Spontaneous
  Country: US (occurrence: US)
  Receive Date: 20170731
  Receipt Date: 20170731
  Transmission Date: 20171127
  Serious: Yes (Death)
  Sender: FDA-Public Use
  Company Number: US-SA-2017SA137173

PATIENT
  Age: 63 Year
  Sex: Female

DRUGS (2)
  1. SOLOSTAR [Concomitant]
     Active Substance: DEVICE
  2. LANTUS SOLOSTAR [Suspect]
     Active Substance: INSULIN GLARGINE
     Indication: DIABETES MELLITUS
     Dosage: 2-4 UNITS
     Route: 051

REACTIONS (4)
  - Staphylococcal infection [Fatal]
  - Renal disorder [Fatal]
  - Chronic obstructive pulmonary disease [Fatal]
  - Diabetic ketoacidotic hyperglycaemic coma [Fatal]
